FAERS Safety Report 12448249 (Version 1)
Quarter: 2016Q2

REPORT INFORMATION
  Report Type: Spontaneous
  Country: AU (occurrence: AU)
  Receive Date: 20160608
  Receipt Date: 20160608
  Transmission Date: 20160815
  Serious: Yes (Other)
  Sender: FDA-Public Use
  Company Number: AU-BAUSCH-BL-2016-013353

PATIENT
  Age: 17 Month
  Sex: Female

DRUGS (6)
  1. DEXAMETHASONE. [Suspect]
     Active Substance: DEXAMETHASONE
     Dosage: FOLLOWED BY WEANING DOSES
  2. DEXAMETHASONE. [Suspect]
     Active Substance: DEXAMETHASONE
     Indication: PRODUCT USED FOR UNKNOWN INDICATION
     Route: 065
  3. INSULIN [Concomitant]
     Active Substance: INSULIN NOS
     Indication: DIABETIC KETOACIDOSIS
     Dosage: VIA AN INSULIN PUMP
  4. INSULIN [Concomitant]
     Active Substance: INSULIN NOS
  5. PREDNISOLONE. [Suspect]
     Active Substance: PREDNISOLONE
     Indication: PRODUCT USED FOR UNKNOWN INDICATION
     Route: 065
  6. IMMUNOGLOBULINS [Concomitant]
     Active Substance: HUMAN IMMUNOGLOBULIN G
     Indication: PRODUCT USED FOR UNKNOWN INDICATION
     Dosage: FIRST DOSE GIVEN ON DAY 12
     Route: 042

REACTIONS (3)
  - Insomnia [Unknown]
  - Cushingoid [Unknown]
  - Irritability [Unknown]
